FAERS Safety Report 9466035 (Version 1)
Quarter: 2013Q3

REPORT INFORMATION
  Report Type: Spontaneous
  Country: US (occurrence: None)
  Receive Date: 20130816
  Receipt Date: 20130816
  Transmission Date: 20140515
  Serious: Yes (Death)
  Sender: FDA-Public Use
  Company Number: None

PATIENT
  Age: 79 Year
  Sex: Male
  Weight: 104.33 kg

DRUGS (2)
  1. ABIRATERONE [Suspect]
     Indication: PROSTATE CANCER
     Dosage: 4 - (1000 MG/DAY) ONCE DAILY TAKEN BY MOUTH
     Route: 048
     Dates: start: 20130415, end: 20130618
  2. LEUPROLIDE ACETATE [Suspect]
     Indication: PROSTATE CANCER
     Dosage: SQ 6 MONTHS  --  GIVEN INTO/UNDER THE SKIN
     Route: 058
     Dates: start: 20120409, end: 20130609

REACTIONS (1)
  - Idiopathic pulmonary fibrosis [None]
